FAERS Safety Report 22709222 (Version 2)
Quarter: 2023Q4

REPORT INFORMATION
  Report Type: Report from Study
  Country: US (occurrence: US)
  Receive Date: 20230717
  Receipt Date: 20231028
  Transmission Date: 20240110
  Serious: Yes (Other)
  Sender: FDA-Public Use
  Company Number: US-ABBVIE-5326430

PATIENT
  Sex: Female

DRUGS (5)
  1. SKYRIZI [Suspect]
     Active Substance: RISANKIZUMAB-RZAA
     Indication: Crohn^s disease
     Dosage: AT WEEK 12?FORM STRENGTH: 360MG/2.4M
     Route: 058
     Dates: start: 20230509, end: 20230509
  2. SKYRIZI [Suspect]
     Active Substance: RISANKIZUMAB-RZAA
     Dosage: WEEK 8?FORM STRENGTH: 360MG/2.4M
     Route: 058
     Dates: start: 20230705
  3. SKYRIZI [Suspect]
     Active Substance: RISANKIZUMAB-RZAA
     Indication: Crohn^s disease
     Dosage: TIME INTERVAL: TOTAL: WEEK 8
     Route: 042
     Dates: start: 20230404, end: 20230404
  4. SKYRIZI [Suspect]
     Active Substance: RISANKIZUMAB-RZAA
     Indication: Crohn^s disease
     Dosage: TIME INTERVAL: TOTAL: WEEK 4
     Route: 042
     Dates: start: 20230308, end: 20230308
  5. SKYRIZI [Suspect]
     Active Substance: RISANKIZUMAB-RZAA
     Indication: Crohn^s disease
     Dosage: TIME INTERVAL: TOTAL: WEEK 0
     Route: 042
     Dates: start: 20230208, end: 20230208

REACTIONS (10)
  - Basal cell carcinoma [Unknown]
  - Asthenia [Unknown]
  - General physical health deterioration [Unknown]
  - Abdominal pain [Unknown]
  - Frequent bowel movements [Not Recovered/Not Resolved]
  - Flatulence [Unknown]
  - Malaise [Unknown]
  - Arthralgia [Unknown]
  - Fatigue [Unknown]
  - Gastrointestinal sounds abnormal [Unknown]

NARRATIVE: CASE EVENT DATE: 20230101
